FAERS Safety Report 6166298-7 (Version None)
Quarter: 2009Q2

REPORT INFORMATION
  Report Type: 
  Country: None (occurrence: None)
  Receive Date: 20090422
  Receipt Date: 20090422
  Transmission Date: 20091009
  Serious: Yes (Life-Threatening, Other)
  Sender: FDA-Public Use
  Company Number: None

PATIENT
  Age: 53 Year
  Sex: Female
  Weight: 52.1637 kg

DRUGS (1)
  1. CEFUROXIME AXETIL [Suspect]
     Indication: SINUSITIS
     Dosage: 500MG 2 X DAY
     Dates: start: 20090130, end: 20090211

REACTIONS (8)
  - CHROMATURIA [None]
  - ERYTHEMA [None]
  - EYE SWELLING [None]
  - HEADACHE [None]
  - PRURITUS [None]
  - RASH GENERALISED [None]
  - SINUSITIS [None]
  - URTICARIA [None]
